FAERS Safety Report 9869618 (Version 1)
Quarter: 2014Q1

REPORT INFORMATION
  Report Type: Spontaneous
  Country: GB (occurrence: None)
  Receive Date: 20140203
  Receipt Date: 20140203
  Transmission Date: 20141002
  Serious: Yes (Other)
  Sender: FDA-Public Use
  Company Number: GB-ALKEM-000480

PATIENT
  Age: 34 Year
  Sex: Male

DRUGS (8)
  1. AMLODIPINE (AMLODIPINE) [Suspect]
  2. DOXAZOSIN (DOXAZOSIN) [Suspect]
  3. CO-CODAMOL [Suspect]
  4. TEMAZEPAM (TEMAZEPAM) [Suspect]
  5. DIAZEPAM (DIAZEPAM) [Suspect]
  6. CITALOPRAM (CITALOPRAM) [Suspect]
  7. ETHYLENE GLYCOL [Suspect]
  8. PERINDOPRIL [Suspect]

REACTIONS (11)
  - Hypotension [None]
  - Hypoxia [None]
  - Loss of consciousness [None]
  - Metabolic acidosis [None]
  - Toxicity to various agents [None]
  - Dialysis [None]
  - Aggression [None]
  - Crystalluria [None]
  - Hypokalaemia [None]
  - Intentional overdose [None]
  - Blood creatinine increased [None]
